FAERS Safety Report 10944438 (Version 1)
Quarter: 2015Q1

REPORT INFORMATION
  Report Type: Spontaneous
  Country: CA (occurrence: None)
  Receive Date: 20150318
  Receipt Date: 20150318
  Transmission Date: 20150721
  Serious: Yes (Life-Threatening, Hospitalization)
  Sender: FDA-Public Use
  Company Number: 2015CA002355

PATIENT
  Age: 86 Year
  Sex: Male

DRUGS (1)
  1. ELIGARD [Suspect]
     Active Substance: LEUPROLIDE ACETATE

REACTIONS (4)
  - Dizziness [None]
  - Rectal haemorrhage [None]
  - Myocardial infarction [None]
  - Abdominal pain [None]

NARRATIVE: CASE EVENT DATE: 20150216
